FAERS Safety Report 8084664-X (Version None)
Quarter: 2012Q1

REPORT INFORMATION
  Report Type: 
  Country: None (occurrence: None)
  Receive Date: 20120128
  Receipt Date: 20110309
  Transmission Date: 20120608
  Serious: Yes (Hospitalization, Other)
  Sender: FDA-Public Use
  Company Number: US-ABBOTT-11P-163-0710859-00

PATIENT
  Sex: Female
  Weight: 68.1 kg

DRUGS (6)
  1. HUMIRA [Suspect]
     Indication: RHEUMATOID ARTHRITIS
     Route: 058
     Dates: start: 20090601, end: 20101201
  2. AZATHIOPRINE [Concomitant]
     Indication: RHEUMATOID ARTHRITIS
  3. HUMIRA [Suspect]
     Route: 058
     Dates: start: 20101201
  4. BENICAR [Concomitant]
     Indication: HYPERTENSION
  5. PREDNISONE TAB [Concomitant]
     Dosage: ALTERNATES DAYS WITH 5 MG TABLET
     Route: 048
  6. PREDNISONE TAB [Concomitant]
     Indication: RHEUMATOID ARTHRITIS
     Dosage: ALTERNATES DAYS WITH 3 MG TABLET
     Route: 048

REACTIONS (2)
  - INJECTION SITE PAIN [None]
  - ARTHRALGIA [None]
